FAERS Safety Report 15367667 (Version 1)
Quarter: 2018Q3

REPORT INFORMATION
  Report Type: Spontaneous
  Country: JP (occurrence: JP)
  Receive Date: 20180910
  Receipt Date: 20180910
  Transmission Date: 20181010
  Serious: Yes (Other)
  Sender: FDA-Public Use
  Company Number: JP-BAYER-2018-165021

PATIENT
  Age: 85 Year
  Sex: Male

DRUGS (1)
  1. STIVARGA [Suspect]
     Active Substance: REGORAFENIB
     Indication: HEPATOCELLULAR CARCINOMA
     Dosage: 80 MG, QD
     Route: 048
     Dates: start: 20180207, end: 20180808

REACTIONS (4)
  - Malaise [None]
  - Hepatocellular carcinoma [Not Recovered/Not Resolved]
  - Oedema peripheral [None]
  - Diarrhoea [None]
